FAERS Safety Report 9848897 (Version 2)
Quarter: 2014Q1

REPORT INFORMATION
  Report Type: Report from Study
  Country: US (occurrence: US)
  Receive Date: 20140128
  Receipt Date: 20140128
  Transmission Date: 20141002
  Serious: Yes (Other)
  Sender: FDA-Public Use
  Company Number: US-ROCHE-1078571

PATIENT
  Sex: Male

DRUGS (4)
  1. AVASTIN [Suspect]
     Indication: MACULAR OEDEMA
     Route: 050
  2. LUCENTIS [Suspect]
     Indication: MACULAR OEDEMA
     Route: 050
     Dates: end: 20120328
  3. LUCENTIS [Suspect]
     Route: 050
     Dates: start: 20120328, end: 20120530
  4. KENALOG (UNITED STATES) [Suspect]
     Indication: MACULAR OEDEMA
     Route: 050

REACTIONS (10)
  - Blindness unilateral [Unknown]
  - Drug ineffective [Unknown]
  - Visual acuity reduced [Unknown]
  - Activities of daily living impaired [Unknown]
  - Macular oedema [Unknown]
  - Disease progression [Unknown]
  - Dry eye [Unknown]
  - Lacrimation increased [Unknown]
  - Therapeutic response decreased [Unknown]
  - Drug effect decreased [Unknown]
